FAERS Safety Report 4429566-2 (Version None)
Quarter: 2004Q3

REPORT INFORMATION
  Report Type: 
  Country: None (occurrence: None)
  Receive Date: 20040819
  Receipt Date: 20040817
  Transmission Date: 20050211
  Serious: Yes (Other)
  Sender: FDA-Public Use
  Company Number: DE-GLAXOSMITHKLINE-D0044438A

PATIENT
  Age: 34 Year
  Sex: Male
  Weight: 82 kg

DRUGS (3)
  1. LAMICTAL [Suspect]
     Indication: EPILEPSY
     Route: 065
     Dates: start: 19990101
  2. SOLIAN [Suspect]
     Indication: EPILEPSY
     Dosage: 100MG UNKNOWN
     Route: 048
     Dates: start: 19990101
  3. KEPPRA [Suspect]
     Indication: EPILEPSY
     Dosage: 250MG UNKNOWN
     Route: 048
     Dates: start: 19990101

REACTIONS (2)
  - PANNICULITIS [None]
  - SYSTEMIC LUPUS ERYTHEMATOSUS [None]
